FAERS Safety Report 7258599-6 (Version None)
Quarter: 2011Q1

REPORT INFORMATION
  Report Type: 
  Country: None (occurrence: None)
  Receive Date: 20110129
  Receipt Date: 20100502
  Transmission Date: 20110831
  Serious: No
  Sender: FDA-Public Use
  Company Number: US-ABBOTT-08P-163-0483105-00

PATIENT
  Sex: Female

DRUGS (2)
  1. HUMIRA [Suspect]
     Indication: PSORIASIS
     Dosage: LOADING DOSE
     Route: 058
     Dates: start: 20081021
  2. MOTRIN [Concomitant]
     Indication: DISCOMFORT
     Route: 048

REACTIONS (6)
  - INJECTION SITE EXTRAVASATION [None]
  - INJECTION SITE PAIN [None]
  - CONTUSION [None]
  - TENDERNESS [None]
  - INCORRECT DOSE ADMINISTERED [None]
  - PARAESTHESIA ORAL [None]
